FAERS Safety Report 8196466-4 (Version None)
Quarter: 2012Q1

REPORT INFORMATION
  Report Type: 
  Country: None (occurrence: None)
  Receive Date: 20120309
  Receipt Date: 20120229
  Transmission Date: 20120608
  Serious: Yes (Other)
  Sender: FDA-Public Use
  Company Number: JP-VERTEX PHARMACEUTICALS INC.-AE-2012-001421

PATIENT
  Age: 70 Year
  Sex: Female

DRUGS (6)
  1. RIBAVIRIN [Concomitant]
     Route: 048
     Dates: start: 20120112, end: 20120201
  2. RIBAVIRIN [Concomitant]
     Route: 048
     Dates: start: 20120105, end: 20120111
  3. TELAVIC (TELAPREVIR) [Suspect]
     Route: 048
     Dates: start: 20111219, end: 20120201
  4. PEGINTERFERON ALFA-2B [Concomitant]
     Indication: HEPATITIS C
     Route: 058
     Dates: start: 20111216
  5. RIBAVIRIN [Concomitant]
     Indication: HEPATITIS C
     Route: 048
     Dates: start: 20111216, end: 20120104
  6. TELAVIC (TELAPREVIR) [Suspect]
     Indication: HEPATITIS C
     Route: 048
     Dates: start: 20111216, end: 20111218

REACTIONS (5)
  - ANAEMIA [None]
  - RETINAL HAEMORRHAGE [None]
  - DECREASED APPETITE [None]
  - PRURITUS [None]
  - NAUSEA [None]
